FAERS Safety Report 24710766 (Version 2)
Quarter: 2024Q4

REPORT INFORMATION
  Report Type: Spontaneous
  Country: DE (occurrence: DE)
  Receive Date: 20241209
  Receipt Date: 20241213
  Transmission Date: 20250114
  Serious: Yes (Other)
  Sender: AUROBINDO
  Company Number: DE-ROCHE-10000138127

PATIENT
  Age: 31 Year

DRUGS (17)
  1. BENDAMUSTINE [Suspect]
     Active Substance: BENDAMUSTINE
     Indication: Burkitt^s lymphoma stage III
     Dosage: UNK
     Route: 065
  2. BENDAMUSTINE [Suspect]
     Active Substance: BENDAMUSTINE
     Indication: Burkitt^s lymphoma
  3. CARBOPLATIN [Suspect]
     Active Substance: CARBOPLATIN
     Indication: Salvage therapy
     Dosage: UNK
     Route: 065
  4. CARBOPLATIN [Suspect]
     Active Substance: CARBOPLATIN
     Indication: Burkitt^s lymphoma
  5. VINCRISTINE [Suspect]
     Active Substance: VINCRISTINE
     Indication: Burkitt^s lymphoma stage III
     Dosage: UNK
     Route: 065
  6. VINCRISTINE [Suspect]
     Active Substance: VINCRISTINE
     Indication: Burkitt^s lymphoma
  7. RITUXIMAB [Suspect]
     Active Substance: RITUXIMAB
     Indication: Salvage therapy
     Dosage: UNK
     Route: 065
  8. RITUXIMAB [Suspect]
     Active Substance: RITUXIMAB
     Indication: Burkitt^s lymphoma
     Dosage: UNK
     Route: 065
     Dates: start: 20240320
  9. RITUXIMAB [Suspect]
     Active Substance: RITUXIMAB
     Indication: Burkitt^s lymphoma stage III
  10. IFOSFAMIDE [Suspect]
     Active Substance: IFOSFAMIDE
     Indication: Salvage therapy
     Dosage: UNK
     Route: 065
  11. IFOSFAMIDE [Suspect]
     Active Substance: IFOSFAMIDE
     Indication: Burkitt^s lymphoma
  12. ETOPOSIDE [Suspect]
     Active Substance: ETOPOSIDE
     Indication: Salvage therapy
     Dosage: UNK
     Route: 065
  13. ETOPOSIDE [Suspect]
     Active Substance: ETOPOSIDE
     Indication: Burkitt^s lymphoma
  14. POLATUZUMAB VEDOTIN [Concomitant]
     Active Substance: POLATUZUMAB VEDOTIN
     Indication: Salvage therapy
     Dosage: UNK
     Route: 065
     Dates: start: 20240320
  15. DEXAMETHASONE [Concomitant]
     Active Substance: DEXAMETHASONE
     Indication: Salvage therapy
     Dosage: UNK
     Route: 065
     Dates: start: 20240320
  16. CYTARABINE [Concomitant]
     Active Substance: CYTARABINE
     Indication: Salvage therapy
     Dosage: UNK
     Route: 065
     Dates: start: 20240320
  17. CISPLATIN [Concomitant]
     Active Substance: CISPLATIN
     Indication: Salvage therapy
     Dosage: UNK
     Route: 065
     Dates: start: 20240320

REACTIONS (3)
  - Malignant neoplasm progression [Unknown]
  - Drug ineffective [Unknown]
  - Disease progression [Unknown]
